FAERS Safety Report 15704075 (Version 1)
Quarter: 2018Q4

REPORT INFORMATION
  Report Type: Spontaneous
  Country: US (occurrence: US)
  Receive Date: 20181127
  Receipt Date: 20181127
  Transmission Date: 20190205
  Serious: No
  Sender: FDA-Public Use
  Company Number: None

PATIENT
  Sex: Female
  Weight: 56.7 kg

DRUGS (1)
  1. VALSARTAN/HCTZ 320/12.5MG [Suspect]
     Active Substance: HYDROCHLOROTHIAZIDE\VALSARTAN
     Dosage: ?          OTHER STRENGTH:320/12.5MG;?

REACTIONS (3)
  - Blood pressure increased [None]
  - Recalled product [None]
  - Product substitution issue [None]
